FAERS Safety Report 24998801 (Version 1)
Quarter: 2025Q1

REPORT INFORMATION
  Report Type: Report from Study
  Country: US (occurrence: US)
  Receive Date: 20250222
  Receipt Date: 20250222
  Transmission Date: 20250408
  Serious: Yes (Other)
  Sender: ALEXION PHARMACEUTICALS
  Company Number: US-AstraZeneca-CH-00809351A

PATIENT

DRUGS (1)
  1. OLAPARIB [Suspect]
     Active Substance: OLAPARIB
     Indication: Prostate cancer
     Dosage: 300 MILLIGRAM, BID

REACTIONS (6)
  - Internal haemorrhage [Unknown]
  - Tinnitus [Unknown]
  - Hangover [Unknown]
  - Muscle release [Unknown]
  - Gastrointestinal disorder [Unknown]
  - Diarrhoea [Unknown]
